FAERS Safety Report 9401186 (Version 2)
Quarter: 2013Q3

REPORT INFORMATION
  Report Type: Report from Study
  Country: US (occurrence: US)
  Receive Date: 20130715
  Receipt Date: 20130821
  Transmission Date: 20140515
  Serious: Yes (Other)
  Sender: FDA-Public Use
  Company Number: US-ABBOTT-13P-163-1116075-00

PATIENT
  Sex: Female
  Weight: 80.81 kg

DRUGS (14)
  1. HUMIRA [Suspect]
     Indication: RHEUMATOID ARTHRITIS
  2. HUMIRA [Suspect]
  3. METHOTREXATE [Concomitant]
     Indication: RHEUMATOID ARTHRITIS
     Route: 050
  4. PREDNISONE [Concomitant]
     Indication: RHEUMATOID ARTHRITIS
     Dosage: 10 MG DAILY
  5. NEXIUM [Concomitant]
     Indication: PROPHYLAXIS
     Dosage: 40 MG DAILY
  6. PREMARIN [Concomitant]
     Indication: HORMONE REPLACEMENT THERAPY
  7. PROZAC [Concomitant]
     Indication: DEPRESSION
     Dosage: 80 MG DAILY
  8. PERCOCET [Concomitant]
     Indication: PAIN
     Dosage: 10/325
  9. PHENERGAN [Concomitant]
     Indication: NAUSEA
  10. ZOFRAN [Concomitant]
     Indication: NAUSEA
  11. LUNESTA [Concomitant]
     Indication: INSOMNIA
  12. EPIPEN [Concomitant]
     Indication: ALLERGY TO ARTHROPOD STING
  13. BENAZEPRIL [Concomitant]
     Indication: BLOOD PRESSURE INCREASED
     Dosage: 20 MG DAILY
  14. CRESTOR [Concomitant]
     Indication: BLOOD CHOLESTEROL INCREASED

REACTIONS (5)
  - Osteoarthritis [Recovered/Resolved]
  - Accident [Recovered/Resolved]
  - Rheumatoid arthritis [Unknown]
  - Liver disorder [Unknown]
  - Liver function test abnormal [Unknown]
